FAERS Safety Report 17946907 (Version 1)
Quarter: 2020Q2

REPORT INFORMATION
  Report Type: Spontaneous
  Country: AU (occurrence: AU)
  Receive Date: 20200625
  Receipt Date: 20200625
  Transmission Date: 20200714
  Serious: Yes (Hospitalization)
  Sender: FDA-Public Use
  Company Number: AU-JNJFOC-20200629184

PATIENT
  Age: 77 Year
  Sex: Male
  Weight: 80 kg

DRUGS (12)
  1. RIVAROXABAN [Suspect]
     Active Substance: RIVAROXABAN
     Indication: PROPHYLAXIS
     Route: 048
     Dates: start: 201906, end: 20200529
  2. ZINC. [Concomitant]
     Active Substance: ZINC
     Dates: start: 20200525
  3. PERINDOPRIL [Concomitant]
     Active Substance: PERINDOPRIL
     Indication: HYPERTENSION
     Dates: start: 20200522
  4. ASCORBIC ACID W/TOCOPHEROL [Concomitant]
     Indication: MACULAR DEGENERATION
     Dates: start: 20200525
  5. ROSUVASTATIN. [Concomitant]
     Active Substance: ROSUVASTATIN
     Indication: HYPERCHOLESTEROLAEMIA
     Dates: start: 20200523
  6. PARACETAMOL [Concomitant]
     Active Substance: ACETAMINOPHEN
     Indication: NEOPLASM MALIGNANT
     Dates: start: 202004
  7. CALTRATE 600+D3 PLUS MINERALS      /07240601/ [Concomitant]
     Active Substance: CALCIUM\CHOLECALCIFEROL\MINERALS
     Dates: start: 20200525
  8. MAGNESIUM                          /01486811/ [Concomitant]
     Dates: start: 20200525
  9. ROSUVASTATIN. [Concomitant]
     Active Substance: ROSUVASTATIN
     Indication: HYPERCHOLESTEROLAEMIA
     Dates: start: 20200523
  10. RIVAROXABAN [Suspect]
     Active Substance: RIVAROXABAN
     Route: 048
  11. LORLATINIB [Concomitant]
     Active Substance: LORLATINIB
     Indication: ANAPLASTIC LARGE-CELL LYMPHOMA
     Route: 048
     Dates: start: 20200509, end: 20200528
  12. LORLATINIB [Concomitant]
     Active Substance: LORLATINIB
     Indication: NON-SMALL CELL LUNG CANCER

REACTIONS (2)
  - Confusional state [Recovered/Resolved]
  - Delirium [Recovered/Resolved]

NARRATIVE: CASE EVENT DATE: 20200527
